FAERS Safety Report 4379511-3 (Version None)
Quarter: 2004Q2

REPORT INFORMATION
  Report Type: 
  Country: None (occurrence: None)
  Receive Date: 20040614
  Receipt Date: 20040602
  Transmission Date: 20050107
  Serious: Yes (Hospitalization)
  Sender: FDA-Public Use
  Company Number: 2004-06-0099

PATIENT
  Age: 44 Year
  Sex: Male
  Weight: 102.0593 kg

DRUGS (11)
  1. PEG-INTRON (PEGINTERFERON ALFA-2B) INJECTABLE POWDER [Suspect]
     Indication: HEPATITIS C
     Dosage: 150 MCG QW SUBCUTANEOUS
     Route: 058
     Dates: start: 20031031, end: 20040604
  2. REBETOL [Suspect]
     Indication: HEPATITIS C
     Dosage: 1400 MG QD ORAL
     Route: 048
     Dates: start: 20031031, end: 20040604
  3. LANTUS [Concomitant]
  4. HUMULIN I [Concomitant]
  5. OXYCODONE [Concomitant]
  6. FLEXERIL [Concomitant]
  7. LEXAPRO [Concomitant]
  8. TRAZODONE HCL [Concomitant]
  9. NORTRIPTYLINE HCL [Concomitant]
  10. LABETALOL HCL [Concomitant]
  11. NEXIUM [Concomitant]

REACTIONS (5)
  - ABASIA [None]
  - CHRONIC INFLAMMATORY DEMYELINATING POLYRADICULONEUROPATHY [None]
  - DYSPNOEA [None]
  - PARAESTHESIA [None]
  - SPEECH DISORDER [None]
